FAERS Safety Report 5733930-9 (Version None)
Quarter: 2008Q2

REPORT INFORMATION
  Report Type: 
  Country: None (occurrence: None)
  Receive Date: 20080509
  Receipt Date: 20080416
  Transmission Date: 20081010
  Serious: No
  Sender: FDA-Public Use
  Company Number: US-BOEHRINGER INGELHEIM GMBH, GERMANY-2008-BP-06033BP

PATIENT
  Sex: Male

DRUGS (4)
  1. CATAPRES-TTS-1 [Suspect]
     Indication: POOR PERIPHERAL CIRCULATION
     Route: 062
     Dates: start: 20080328, end: 20080407
  2. GABAPENTIN [Concomitant]
     Route: 048
  3. NORCO [Concomitant]
     Indication: PAIN
     Route: 048
  4. ALBUTEROL [Concomitant]
     Indication: ASTHMA

REACTIONS (2)
  - PHARMACEUTICAL PRODUCT COMPLAINT [None]
  - THERAPEUTIC PRODUCT INEFFECTIVE FOR UNAPPROVED INDICATION [None]
